FAERS Safety Report 14009512 (Version 2)
Quarter: 2017Q4

REPORT INFORMATION
  Report Type: Spontaneous
  Country: US (occurrence: US)
  Receive Date: 20170925
  Receipt Date: 20171130
  Transmission Date: 20180321
  Serious: Yes (Hospitalization)
  Sender: FDA-Public Use
  Company Number: US-IMPAX LABORATORIES, INC-2017-IPXL-02746

PATIENT

DRUGS (5)
  1. BACLOFEN. [Suspect]
     Active Substance: BACLOFEN
     Indication: DRUG WITHDRAWAL SYNDROME
     Dosage: 5 MG/ML, WAS BEGUN AT A DOSE OF 0.5 MG/KG, PER DAY, DIVIDED IN 4 DOSES
     Route: 048
  2. BACLOFEN. [Suspect]
     Active Substance: BACLOFEN
     Dosage: ON FOURTH DAY DOSAGE WAS HALVED TO 0.25 MG/KG PER DAY
     Route: 048
  3. BACLOFEN. [Suspect]
     Active Substance: BACLOFEN
     Dosage: ON 7TH DAY OF TREATMENT, THE DOSAGE WAS HALVED AGAIN TO 0.125 MG/KG PER DAY, DIVIDED INTO TWO DOSES
     Route: 048
  4. BACLOFEN. [Suspect]
     Active Substance: BACLOFEN
     Dosage: 11TH DAY, THE DAILY DOSAGE WAS HALVED TO 0.067 MG/KG PER DAY AS A SINGLE DOSE
     Route: 048
  5. BACLOFEN. [Suspect]
     Active Substance: BACLOFEN
     Indication: FOETAL EXPOSURE DURING PREGNANCY
     Dosage: UNK
     Route: 064

REACTIONS (12)
  - Hypertonia [Recovered/Resolved]
  - Sleep disorder [Recovered/Resolved]
  - Hyperthermia [Recovered/Resolved]
  - Drug withdrawal syndrome neonatal [Recovered/Resolved]
  - Diarrhoea [Recovered/Resolved]
  - Tremor neonatal [Recovered/Resolved]
  - Pigmentation disorder [Recovered/Resolved]
  - Crying [Recovered/Resolved]
  - Selective eating disorder [Recovered/Resolved]
  - Premature baby [Unknown]
  - Convulsion neonatal [Recovered/Resolved]
  - Foetal exposure during pregnancy [Unknown]
